FAERS Safety Report 4735664-6 (Version None)
Quarter: 2005Q3

REPORT INFORMATION
  Report Type: 
  Country: None (occurrence: None)
  Receive Date: 20050805
  Receipt Date: 20050729
  Transmission Date: 20060218
  Serious: Yes (Hospitalization)
  Sender: FDA-Public Use
  Company Number: US-SANOFI-SYNTHELABO-F01200501372

PATIENT
  Sex: Male

DRUGS (16)
  1. OXALIPLATIN [Suspect]
     Indication: COLORECTAL CANCER
     Dosage: NOT REPORTED
  2. BEVACIZUMAB [Suspect]
     Route: 042
     Dates: start: 20050428
  3. FLUOROURACIL [Suspect]
     Dosage: NOT PROVIDED
  4. LEUCOVORIN [Suspect]
     Dosage: NOT PROVIDED
  5. NEULASTA [Concomitant]
     Dates: start: 20050620
  6. HYPERALIMENTATION PARENTERAL [Concomitant]
  7. INSULIN [Concomitant]
  8. ZOSYN [Concomitant]
  9. LASIX [Concomitant]
  10. REGLAN [Concomitant]
  11. FLUCONAZOLE [Concomitant]
  12. MORPHINE [Concomitant]
  13. TYLENOL (CAPLET) [Concomitant]
  14. SYNTHROID [Concomitant]
  15. DARVOCET [Concomitant]
  16. HEPARIN [Suspect]
     Indication: DEEP VEIN THROMBOSIS

REACTIONS (7)
  - ABDOMINAL ABSCESS [None]
  - ASCITES [None]
  - DEEP VEIN THROMBOSIS [None]
  - DYSURIA [None]
  - GASTROINTESTINAL PERFORATION [None]
  - HEART RATE INCREASED [None]
  - POST PROCEDURAL HAEMORRHAGE [None]
